FAERS Safety Report 9149174 (Version 2)
Quarter: 2013Q1

REPORT INFORMATION
  Report Type: Spontaneous
  Country: US (occurrence: US)
  Receive Date: 20130308
  Receipt Date: 20130327
  Transmission Date: 20140127
  Serious: No
  Sender: FDA-Public Use
  Company Number: US-PFIZER INC-2013077272

PATIENT
  Age: 48 Year
  Sex: Male
  Weight: 68.03 kg

DRUGS (10)
  1. XALKORI [Suspect]
     Indication: LUNG NEOPLASM MALIGNANT
     Dosage: 250 MG (1 CAPSULE), 2X/DAY
     Route: 048
  2. FLEXERIL [Concomitant]
     Dosage: 10 MG, UNK
  3. MS CONTIN [Concomitant]
     Dosage: 30 MG, UNK
  4. LASIX [Concomitant]
     Dosage: 40 MG, UNK
  5. KLOR-CON [Concomitant]
     Dosage: 8 MEQ, UNK
  6. CELEXA [Concomitant]
     Dosage: 40 MG, UNK
  7. MIRALAX POW 3350 NF [Concomitant]
     Dosage: UNK
  8. ALEVE [Concomitant]
     Dosage: 220 MG, UNK
  9. STOOL SOFTENER [Concomitant]
     Dosage: 100-30, UNK
  10. TYLENOL [Concomitant]
     Dosage: 325 MG, UNK

REACTIONS (2)
  - Nausea [Unknown]
  - Vomiting [Unknown]
